FAERS Safety Report 16576858 (Version 3)
Quarter: 2021Q1

REPORT INFORMATION
  Report Type: Spontaneous
  Country: PK (occurrence: PK)
  Receive Date: 20190716
  Receipt Date: 20210211
  Transmission Date: 20210419
  Serious: Yes (Hospitalization)
  Sender: FDA-Public Use
  Company Number: PK-AMGEN-PAKSP2019037921

PATIENT
  Age: 23 Year
  Sex: Male
  Weight: 72 kg

DRUGS (3)
  1. ROTEC [DICLOFENAC SODIUM;MISOPROSTOL] [Concomitant]
     Dosage: 75 TABLET MORNING, EVENING, AFTER MEAL
  2. ENBREL [Suspect]
     Active Substance: ETANERCEPT
     Dosage: 50 MG, WEEKLY (ON EVERY FRIDAY)
     Route: 058
  3. ENBREL [Suspect]
     Active Substance: ETANERCEPT
     Indication: ANKYLOSING SPONDYLITIS
     Dosage: UNK, WEEKLY
     Route: 058
     Dates: start: 20181030

REACTIONS (1)
  - Back pain [Not Recovered/Not Resolved]
